FAERS Safety Report 20692508 (Version 1)
Quarter: 2022Q2

REPORT INFORMATION
  Report Type: Spontaneous
  Country: US (occurrence: US)
  Receive Date: 20220409
  Receipt Date: 20220409
  Transmission Date: 20220721
  Serious: No
  Sender: FDA-Public Use
  Company Number: US-SA-SAC20220407000232

PATIENT
  Age: 67 Year
  Sex: Female

DRUGS (12)
  1. DUPIXENT [Suspect]
     Active Substance: DUPILUMAB
     Indication: Asthma
     Dosage: 300 MG, QOW
     Route: 058
     Dates: start: 20210121
  2. CAYSTON [Concomitant]
     Active Substance: AZTREONAM
  3. PREVACID [Concomitant]
     Active Substance: LANSOPRAZOLE
  4. PROAIR HFA [Concomitant]
     Active Substance: ALBUTEROL SULFATE
  5. PULMOZYME [Concomitant]
     Active Substance: DORNASE ALFA
  6. QVAR [Concomitant]
     Active Substance: BECLOMETHASONE DIPROPIONATE
  7. SINGULAIR [Concomitant]
     Active Substance: MONTELUKAST SODIUM
  8. TOBI PODHALER [Concomitant]
     Active Substance: TOBRAMYCIN
  9. VIVAGLOBIN [Concomitant]
     Active Substance: HUMAN IMMUNOGLOBULIN G
  10. ZYRTEC [Concomitant]
     Active Substance: CETIRIZINE HYDROCHLORIDE
  11. ADVAIR HFA [Concomitant]
     Active Substance: FLUTICASONE PROPIONATE\SALMETEROL XINAFOATE
  12. HIZENTRA [Concomitant]
     Active Substance: HUMAN IMMUNOGLOBULIN G

REACTIONS (3)
  - Myalgia [Unknown]
  - Pain [Unknown]
  - Arthralgia [Unknown]
